FAERS Safety Report 9551752 (Version 1)
Quarter: 2013Q3

REPORT INFORMATION
  Report Type: Spontaneous
  Country: US (occurrence: None)
  Receive Date: 20130724
  Receipt Date: 20130724
  Transmission Date: 20140515
  Serious: Yes (Other)
  Sender: FDA-Public Use
  Company Number: PHEH2012US013077

PATIENT
  Age: 76 Year
  Sex: Male
  Weight: 64.9 kg

DRUGS (2)
  1. GLEEVEC [Suspect]
     Indication: GASTROINTESTINAL STROMAL TUMOUR
     Dosage: 400 MG, QD, ORAL
     Route: 048
     Dates: start: 201204
  2. GLEEVEC [Suspect]
     Indication: GASTRIC CANCER
     Dosage: 400 MG, QD, ORAL
     Route: 048
     Dates: start: 201204

REACTIONS (5)
  - Neoplasm progression [None]
  - Diarrhoea [None]
  - Nausea [None]
  - Drug ineffective [None]
  - Malignant neoplasm progression [None]
